FAERS Safety Report 10451348 (Version 2)
Quarter: 2014Q3

REPORT INFORMATION
  Report Type: Spontaneous
  Country: US (occurrence: US)
  Receive Date: 20140912
  Receipt Date: 20140912
  Transmission Date: 20150326
  Serious: Yes (Hospitalization)
  Sender: FDA-Public Use
  Company Number: US-LUNDBECK-DKLU1102534

PATIENT
  Sex: Female
  Weight: 10 kg

DRUGS (5)
  1. KEPPRA [Concomitant]
     Active Substance: LEVETIRACETAM
     Indication: INFANTILE SPASMS
  2. ONFI [Concomitant]
     Active Substance: CLOBAZAM
     Indication: INFANTILE SPASMS
     Dosage: 2.5 (UNITS UNKNOWN)
  3. SABRIL [Suspect]
     Active Substance: VIGABATRIN
     Indication: INFANTILE SPASMS
     Route: 048
     Dates: start: 20140124
  4. PREDNISOLONE. [Concomitant]
     Active Substance: PREDNISOLONE
     Indication: PRODUCT USED FOR UNKNOWN INDICATION
  5. TOPAMAX [Concomitant]
     Active Substance: TOPIRAMATE
     Indication: INFANTILE SPASMS

REACTIONS (1)
  - Convulsion [Recovered/Resolved]
